FAERS Safety Report 11293557 (Version 2)
Quarter: 2015Q3

REPORT INFORMATION
  Report Type: Report from Study
  Country: JP (occurrence: JP)
  Receive Date: 20150722
  Receipt Date: 20150814
  Transmission Date: 20151125
  Serious: Yes (Hospitalization, Other)
  Sender: FDA-Public Use
  Company Number: JP-ASTRAZENECA-2015SE70492

PATIENT
  Age: 59 Year
  Sex: Female
  Weight: 84 kg

DRUGS (11)
  1. GASTER [Concomitant]
     Active Substance: FAMOTIDINE
  2. ATARAX-P [Concomitant]
     Active Substance: HYDROXYZINE HYDROCHLORIDE
  3. TRINOSIN [Concomitant]
     Active Substance: ADENOSINE TRIPHOSPHATE DISODIUM
  4. GLYCYRRHIZA POWDER COMBINED DRUG [Concomitant]
  5. MERISLON [Concomitant]
     Active Substance: BETAHISTINE MESILATE
  6. FLUITRAN [Concomitant]
     Active Substance: TRICHLORMETHIAZIDE
  7. SOLITA [Concomitant]
  8. PRIMPERAN [Concomitant]
     Active Substance: METOCLOPRAMIDE HYDROCHLORIDE
  9. ANASTROZOLE. [Suspect]
     Active Substance: ANASTROZOLE
     Indication: OESTROGEN RECEPTOR POSITIVE BREAST CANCER
     Route: 048
     Dates: start: 20071031, end: 20121030
  10. MEVALOTIN [Concomitant]
     Active Substance: PRAVASTATIN SODIUM
  11. LOXONIN [Concomitant]
     Active Substance: LOXOPROFEN SODIUM

REACTIONS (2)
  - Transient ischaemic attack [Recovering/Resolving]
  - Feeling abnormal [Recovered/Resolved]

NARRATIVE: CASE EVENT DATE: 20100521
